FAERS Safety Report 7289450-6 (Version None)
Quarter: 2011Q1

REPORT INFORMATION
  Report Type: 
  Country: None (occurrence: None)
  Receive Date: 20110211
  Receipt Date: 20110211
  Transmission Date: 20110831
  Serious: Yes (Other)
  Sender: FDA-Public Use
  Company Number: US-ABBOTT-10P-163-0690855-00

PATIENT
  Sex: Female
  Weight: 72.64 kg

DRUGS (8)
  1. IBUPROFEN CREAM [Concomitant]
     Indication: PRODUCT USED FOR UNKNOWN INDICATION
     Dosage: TO KNEES AS NEEDED
     Route: 061
  2. GAS-X [Concomitant]
     Indication: COLONOSCOPY
     Route: 048
     Dates: start: 20101020, end: 20101020
  3. MIRALAX [Suspect]
     Indication: COLONOSCOPY
     Route: 048
     Dates: start: 20101020, end: 20101020
  4. HUMIRA [Suspect]
     Indication: RHEUMATOID ARTHRITIS
     Route: 058
     Dates: start: 20110119
  5. PRILOSEC [Concomitant]
     Indication: PRODUCT USED FOR UNKNOWN INDICATION
  6. HUMIRA [Suspect]
     Indication: RHEUMATOID ARTHRITIS
     Route: 058
  7. SYNTHROID [Concomitant]
     Indication: PRODUCT USED FOR UNKNOWN INDICATION
  8. PREDNISONE [Concomitant]
     Indication: PRODUCT USED FOR UNKNOWN INDICATION

REACTIONS (9)
  - INJECTION SITE PAIN [None]
  - DEVICE MALFUNCTION [None]
  - BLOOD PRESSURE DECREASED [None]
  - POLYP [None]
  - DEHYDRATION [None]
  - VOMITING [None]
  - INJECTION SITE HAEMATOMA [None]
  - INCORRECT DOSE ADMINISTERED [None]
  - RENAL FUNCTION TEST ABNORMAL [None]
